FAERS Safety Report 16113530 (Version 2)
Quarter: 2019Q1

REPORT INFORMATION
  Report Type: Spontaneous
  Country: US (occurrence: US)
  Receive Date: 20190325
  Receipt Date: 20190325
  Transmission Date: 20190418
  Serious: No
  Sender: FDA-Public Use
  Company Number: US-ALLERGAN-1841422US

PATIENT
  Age: 66 Year
  Sex: Female

DRUGS (11)
  1. LUMIGAN [Suspect]
     Active Substance: BIMATOPROST
     Indication: HAIR GROWTH ABNORMAL
  2. CARVEDILOL. [Concomitant]
     Active Substance: CARVEDILOL
     Indication: STRESS CARDIOMYOPATHY
     Dosage: 2 DF, QD
     Route: 048
  3. ATORVASTAN [Concomitant]
     Indication: BLOOD CHOLESTEROL INCREASED
     Dosage: UNK
     Route: 048
  4. CARVEDILOL. [Concomitant]
     Active Substance: CARVEDILOL
     Indication: STERNAL FRACTURE
  5. LUMIGAN [Suspect]
     Active Substance: BIMATOPROST
     Indication: GLAUCOMA
     Dosage: 2 GTT, QD
     Route: 047
  6. LUMIGAN [Suspect]
     Active Substance: BIMATOPROST
     Indication: HAIR GROWTH ABNORMAL
  7. SYNTHROID [Concomitant]
     Active Substance: LEVOTHYROXINE SODIUM
     Indication: HYPOTHYROIDISM
     Dosage: UNK
     Route: 048
  8. LUMIGAN [Suspect]
     Active Substance: BIMATOPROST
     Indication: GLAUCOMA
     Dosage: 2 GTT, QD
     Route: 047
  9. LOSARTAN. [Concomitant]
     Active Substance: LOSARTAN
     Indication: STRESS CARDIOMYOPATHY
     Dosage: UNK
     Route: 048
  10. SERTRALINE [Concomitant]
     Active Substance: SERTRALINE HYDROCHLORIDE
     Indication: ANXIETY
     Dosage: 25 MG, UNK
     Route: 048
  11. LOSARTAN. [Concomitant]
     Active Substance: LOSARTAN
     Indication: STERNAL FRACTURE

REACTIONS (5)
  - Product dose omission [Unknown]
  - Eye irritation [Not Recovered/Not Resolved]
  - Ocular hyperaemia [Not Recovered/Not Resolved]
  - Therapeutic response unexpected [Unknown]
  - Off label use [Unknown]
